FAERS Safety Report 24062847 (Version 1)
Quarter: 2024Q3

REPORT INFORMATION
  Report Type: Report from Study
  Country: US (occurrence: US)
  Receive Date: 20240709
  Receipt Date: 20240709
  Transmission Date: 20241017
  Serious: Yes (Hospitalization, Other)
  Sender: ABBVIE
  Company Number: US-ABBVIE-5829057

PATIENT
  Age: 80 Year
  Sex: Male

DRUGS (4)
  1. VENCLEXTA [Suspect]
     Active Substance: VENETOCLAX
     Indication: Plasma cell myeloma
     Route: 048
     Dates: start: 2018, end: 202406
  2. JARDIANCE [Concomitant]
     Active Substance: EMPAGLIFLOZIN
     Indication: Product used for unknown indication
  3. OZEMPIC [Concomitant]
     Active Substance: SEMAGLUTIDE
     Indication: Blood glucose abnormal
  4. INSULIN NOS [Concomitant]
     Active Substance: INSULIN NOS
     Indication: Product used for unknown indication

REACTIONS (9)
  - Sepsis [Not Recovered/Not Resolved]
  - Weight decreased [Recovered/Resolved]
  - Pneumonia [Not Recovered/Not Resolved]
  - Blood pressure orthostatic abnormal [Not Recovered/Not Resolved]
  - Respiratory rate decreased [Not Recovered/Not Resolved]
  - Hospitalisation [Unknown]
  - Aspiration [Not Recovered/Not Resolved]
  - Off label use [Not Recovered/Not Resolved]
  - Type 2 diabetes mellitus [Unknown]

NARRATIVE: CASE EVENT DATE: 20240601
